FAERS Safety Report 20670011 (Version 4)
Quarter: 2022Q2

REPORT INFORMATION
  Report Type: Spontaneous
  Country: BR (occurrence: BR)
  Receive Date: 20220404
  Receipt Date: 20220509
  Transmission Date: 20220720
  Serious: Yes (Other)
  Sender: FDA-Public Use
  Company Number: BR-PFIZER INC-202200181275

PATIENT
  Age: 76 Year
  Sex: Male

DRUGS (2)
  1. ALPRAZOLAM [Suspect]
     Active Substance: ALPRAZOLAM
     Indication: Panic reaction
     Dosage: 1 MG, 2X/DAY (1 MG IN THE MORNING AND 1 MG AT SLEEP/AT BEDTIME)
     Dates: start: 1996
  2. ALPRAZOLAM [Suspect]
     Active Substance: ALPRAZOLAM
     Dosage: 1 MG, 1X/DAY

REACTIONS (7)
  - Bladder cancer [Unknown]
  - Weight decreased [Unknown]
  - Drug dependence [Unknown]
  - Therapeutic product effect decreased [Unknown]
  - Dysgeusia [Unknown]
  - Renal pain [Unknown]
  - Product use issue [Unknown]
